FAERS Safety Report 7817156-0 (Version None)
Quarter: 2011Q4

REPORT INFORMATION
  Report Type: 
  Country: None (occurrence: None)
  Receive Date: 20111017
  Receipt Date: 20111017
  Transmission Date: 20120403
  Serious: Yes (Hospitalization)
  Sender: FDA-Public Use
  Company Number: None

PATIENT
  Age: 88 Year
  Sex: Male
  Weight: 36 kg

DRUGS (4)
  1. PRADAXA [Suspect]
     Indication: ATRIAL FLUTTER
     Dosage: 75MG
     Route: 048
  2. PRADAXA [Suspect]
     Indication: ATRIAL FIBRILLATION
     Dosage: 75MG
     Route: 048
  3. AMLODIPINE [Concomitant]
     Route: 048
  4. BISOPROLOL FUMARATE AND HYDROCHLOROTHIAZIDE [Concomitant]
     Route: 048

REACTIONS (4)
  - TRANSIENT ISCHAEMIC ATTACK [None]
  - GLOMERULAR FILTRATION RATE DECREASED [None]
  - BRADYCARDIA [None]
  - HEMIPARESIS [None]
